FAERS Safety Report 22098632 (Version 11)
Quarter: 2023Q4

REPORT INFORMATION
  Report Type: Spontaneous
  Country: US (occurrence: US)
  Receive Date: 20230315
  Receipt Date: 20231113
  Transmission Date: 20240110
  Serious: Yes (Other)
  Sender: FDA-Public Use
  Company Number: US-PFIZER INC-PV202300047957

PATIENT
  Age: 80 Year
  Sex: Male

DRUGS (2)
  1. RETACRIT [Suspect]
     Active Substance: EPOETIN ALFA-EPBX
     Indication: Nephrogenic anaemia
     Dosage: 20000 IU, WEEKLY (20,000 UNIT/ML INJECTABLE SOLUTION, 1 ML, ONCE WEEKLY)
  2. RETACRIT [Suspect]
     Active Substance: EPOETIN ALFA-EPBX
     Indication: Chronic kidney disease
     Dosage: 20000 IU (20,000 UNIT/ML INJECTABLE SOLUTION, 1 ML), EVERY 2 WEEKS
     Route: 058

REACTIONS (10)
  - Arthropathy [Unknown]
  - Limb deformity [Unknown]
  - Peripheral swelling [Recovering/Resolving]
  - Dyspnoea exertional [Recovering/Resolving]
  - Nocturia [Unknown]
  - Constipation [Unknown]
  - Night sweats [Unknown]
  - Oedema peripheral [Unknown]
  - Off label use [Unknown]
  - Product prescribing error [Unknown]
